FAERS Safety Report 7604334-9 (Version None)
Quarter: 2011Q3

REPORT INFORMATION
  Report Type: 
  Country: None (occurrence: None)
  Receive Date: 20110712
  Receipt Date: 20110708
  Transmission Date: 20111222
  Serious: Yes (Death, Hospitalization, Other)
  Sender: FDA-Public Use
  Company Number: PHHY2011JP55808

PATIENT
  Age: 50 Year
  Sex: Male

DRUGS (8)
  1. MEROPENEM [Concomitant]
  2. ANTIBIOTICS [Concomitant]
  3. CEFAZOLIN [Concomitant]
  4. AMINOBENZYL PENICILLIN [Concomitant]
  5. AMIKACIN [Concomitant]
  6. RABEPRAZOLE SODIUM [Concomitant]
  7. SULBACTAM [Concomitant]
  8. CYCLOSPORINE [Suspect]
     Indication: PSORIASIS
     Dosage: UNK UKN, UNK
     Route: 048
     Dates: start: 20051208, end: 20101114

REACTIONS (11)
  - CYST [None]
  - HAEMATEMESIS [None]
  - ABSCESS [None]
  - INFECTION [None]
  - GAIT DISTURBANCE [None]
  - INFLAMMATION [None]
  - AORTIC ANEURYSM [None]
  - SEPSIS [None]
  - PYREXIA [None]
  - PULMONARY EMBOLISM [None]
  - ARTHRALGIA [None]
